FAERS Safety Report 23431088 (Version 4)
Quarter: 2024Q1

REPORT INFORMATION
  Report Type: Spontaneous
  Country: JP (occurrence: JP)
  Receive Date: 20240123
  Receipt Date: 20240325
  Transmission Date: 20240410
  Serious: Yes (Other)
  Sender: FDA-Public Use
  Company Number: JP-BAYER-2024A012085

PATIENT
  Age: 9 Decade
  Sex: Female

DRUGS (9)
  1. EYLEA [Suspect]
     Active Substance: AFLIBERCEPT
     Indication: Age-related macular degeneration
     Dosage: 3 TIMES,LEFT, SOLUTION FOR INJECTION IN PRE-FILLED SYRINGE, 40 MG/ML
     Route: 031
     Dates: start: 20200406, end: 20200907
  2. EYLEA [Suspect]
     Active Substance: AFLIBERCEPT
     Dosage: ONCE, LEFT, SOLUTION FOR INJECTION IN PRE-FILLED SYRINGE, 40 MG/ML
     Route: 031
     Dates: start: 20210316, end: 20210316
  3. EYLEA [Suspect]
     Active Substance: AFLIBERCEPT
     Dosage: ONCE, LEFT, SOLUTION FOR INJECTION IN PRE-FILLED SYRINGE, 40 MG/ML
     Route: 031
     Dates: start: 20210514, end: 20210514
  4. EYLEA [Suspect]
     Active Substance: AFLIBERCEPT
     Dosage: ONCE, LEFT, SOLUTION FOR INJECTION IN PRE-FILLED SYRINGE, 40 MG/ML
     Route: 031
     Dates: start: 20211110, end: 20211110
  5. EYLEA [Suspect]
     Active Substance: AFLIBERCEPT
     Dosage: ONCE, LEFT, SOLUTION FOR INJECTION IN PRE-FILLED SYRINGE, 40 MG/ML
     Route: 031
     Dates: start: 20220330, end: 20220330
  6. EYLEA [Suspect]
     Active Substance: AFLIBERCEPT
     Dosage: ONCE, LEFT, SOLUTION FOR INJECTION IN PRE-FILLED SYRINGE, 40 MG/ML
     Route: 031
     Dates: start: 20220816, end: 20220816
  7. EYLEA [Suspect]
     Active Substance: AFLIBERCEPT
     Dosage: ONCE, LEFT, SOLUTION FOR INJECTION IN PRE-FILLED SYRINGE, 40 MG/ML
     Route: 031
     Dates: start: 20230609, end: 20230609
  8. EYLEA [Suspect]
     Active Substance: AFLIBERCEPT
     Dosage: ONCE, LEFT, SOLUTION FOR INJECTION IN PRE-FILLED SYRINGE, 40 MG/ML
     Route: 031
     Dates: start: 20231225, end: 20231225
  9. BROMFENAC SODIUM [Concomitant]
     Active Substance: BROMFENAC SODIUM
     Indication: Product used for unknown indication
     Dosage: UNK UNK, BID
     Dates: start: 2023

REACTIONS (5)
  - Age-related macular degeneration [Recovering/Resolving]
  - Retinal vasculitis [Recovered/Resolved]
  - Retinal vasculitis [Recovered/Resolved]
  - Posterior capsule opacification [Recovered/Resolved]
  - Eye swelling [Recovering/Resolving]

NARRATIVE: CASE EVENT DATE: 20230101
